FAERS Safety Report 10059389 (Version 1)
Quarter: 2014Q2

REPORT INFORMATION
  Report Type: Spontaneous
  Country: JP (occurrence: JP)
  Receive Date: 20140404
  Receipt Date: 20140404
  Transmission Date: 20141212
  Serious: Yes (Hospitalization)
  Sender: FDA-Public Use
  Company Number: JP-ALLERGAN-1406556US

PATIENT
  Age: 73 Year
  Sex: Male

DRUGS (3)
  1. ALPHAGAN [Suspect]
     Indication: GLAUCOMA
     Dosage: 1 DROP IN EACH EYE TWICE DAILY
     Route: 047
     Dates: start: 2013
  2. LUMIGAN [Suspect]
     Indication: GLAUCOMA
     Dosage: 1 DROP IN EACH EYE ONCE DAILY
     Route: 047
  3. COSOPT [Suspect]
     Indication: GLAUCOMA
     Dosage: 1 DROP IN LEFT EYE TWICE DAILY
     Route: 047

REACTIONS (6)
  - Cerebral infarction [Recovered/Resolved with Sequelae]
  - Speech disorder [Unknown]
  - Scab [Not Recovered/Not Resolved]
  - Eyelids pruritus [Not Recovered/Not Resolved]
  - Eye discharge [Not Recovered/Not Resolved]
  - Ocular hyperaemia [Not Recovered/Not Resolved]
